FAERS Safety Report 13981679 (Version 1)
Quarter: 2017Q3

REPORT INFORMATION
  Report Type: Spontaneous
  Country: US (occurrence: US)
  Receive Date: 20170918
  Receipt Date: 20170918
  Transmission Date: 20171128
  Serious: No
  Sender: FDA-Public Use
  Company Number: US-BION-005810

PATIENT
  Age: 96 Year
  Sex: Female
  Weight: 54.43 kg

DRUGS (3)
  1. ASCORBIC ACID/CUPRIC OXIDE/TOCOPHERYL ACETATE/XANTOFYL/ZINC OXIDE [Concomitant]
     Indication: BLINDNESS
     Dosage: 1 AT NIGHT
  2. METOPROLOL. [Concomitant]
     Active Substance: METOPROLOL
     Indication: ANTICOAGULANT THERAPY
  3. ZYRTEC [Suspect]
     Active Substance: CETIRIZINE HYDROCHLORIDE
     Indication: HYPERSENSITIVITY
     Dosage: 1 LIQUIDGEL AT NIGHT
     Route: 048

REACTIONS (3)
  - Incorrect drug administration duration [None]
  - Drug ineffective [Not Recovered/Not Resolved]
  - Impaired work ability [None]
